FAERS Safety Report 5252955-3 (Version None)
Quarter: 2007Q1

REPORT INFORMATION
  Report Type: 
  Country: None (occurrence: None)
  Receive Date: 20070227
  Receipt Date: 20070220
  Transmission Date: 20070707
  Serious: Yes (Death, Hospitalization)
  Sender: FDA-Public Use
  Company Number: 2006S1000134

PATIENT
  Age: 7 Day
  Sex: Female

DRUGS (15)
  1. NITRIC OXIDE [Suspect]
     Dosage: 5 PPM;INH, CONT
     Route: 055
     Dates: start: 20060626, end: 20060710
  2. CAFFEINE [Concomitant]
  3. MICONAZOLE [Concomitant]
  4. VANCOMYCIN HYDROCHLORIDE [Concomitant]
  5. CEFOTAXIME [Concomitant]
  6. METRONIDAZOLE [Concomitant]
  7. FENTANYL [Concomitant]
  8. INSULIN [Concomitant]
  9. IBUPROFEN [Concomitant]
  10. ATROPINE [Concomitant]
  11. AMPICILLIN [Concomitant]
  12. ACETAMINOPHEN [Concomitant]
  13. FLUCONAZOLE [Concomitant]
  14. SODIUM BICARBONATE [Concomitant]
  15. FENTANYL [Concomitant]

REACTIONS (17)
  - CANDIDA SEPSIS [None]
  - CAPILLARY LEAK SYNDROME [None]
  - DISSEMINATED INTRAVASCULAR COAGULATION [None]
  - GENERAL PHYSICAL HEALTH DETERIORATION [None]
  - HYPOTENSION [None]
  - HYPOXIA [None]
  - INFECTION [None]
  - INFLAMMATION [None]
  - INTESTINAL PERFORATION [None]
  - INTRAVENTRICULAR HAEMORRHAGE NEONATAL [None]
  - PATENT DUCTUS ARTERIOSUS [None]
  - RENAL FAILURE [None]
  - RENAL FAILURE NEONATAL [None]
  - RESPIRATORY DISORDER [None]
  - SEPSIS NEONATAL [None]
  - THROMBOCYTOPENIA [None]
  - THROMBOCYTOPENIA NEONATAL [None]
